FAERS Safety Report 4522492-X (Version None)
Quarter: 2004Q4

REPORT INFORMATION
  Report Type: 
  Country: None (occurrence: None)
  Receive Date: 20041207
  Receipt Date: 20041122
  Transmission Date: 20050328
  Serious: Yes (Death, Other)
  Sender: FDA-Public Use
  Company Number: USA041080203

PATIENT
  Sex: Female
  Weight: 73 kg

DRUGS (4)
  1. XIGRIS [Suspect]
     Indication: SEPSIS
     Dosage: 24 UG/KG/HR
     Dates: start: 20041003, end: 20041005
  2. DOPAMINE HCL [Concomitant]
  3. LEVOPHED [Concomitant]
  4. EPINEPHRINE [Concomitant]

REACTIONS (6)
  - ACUTE RESPIRATORY DISTRESS SYNDROME [None]
  - CATHETER RELATED COMPLICATION [None]
  - EXTRAVASATION [None]
  - INFUSION SITE REACTION [None]
  - PNEUMONIA STAPHYLOCOCCAL [None]
  - PULSE ABSENT [None]
